FAERS Safety Report 17388267 (Version 1)
Quarter: 2020Q1

REPORT INFORMATION
  Report Type: Spontaneous
  Country: US (occurrence: US)
  Receive Date: 20200207
  Receipt Date: 20200207
  Transmission Date: 20200409
  Serious: Yes (Other)
  Sender: FDA-Public Use
  Company Number: US-AVEDRO-AVE-2020-0027-AE

PATIENT
  Age: 59 Year
  Sex: Female

DRUGS (2)
  1. CROSS-LINKING PRODUCT(S), UNSPECIFIED [Suspect]
     Active Substance: RIBOFLAVIN 5^-PHOSPHATE SODIUM
     Indication: KERATOCONUS
     Route: 047
  2. CROSS-LINKING PRODUCT(S), UNSPECIFIED [Suspect]
     Active Substance: RIBOFLAVIN 5^-PHOSPHATE SODIUM
     Indication: KERATOCONUS
     Route: 047

REACTIONS (5)
  - Corneal thinning [Unknown]
  - Corneal disorder [Unknown]
  - Aqueous humour leakage [Recovered/Resolved]
  - Off label use [Unknown]
  - Corneal perforation [Recovered/Resolved]
